FAERS Safety Report 12965330 (Version 1)
Quarter: 2016Q4

REPORT INFORMATION
  Report Type: Report from Study
  Country: BR (occurrence: BR)
  Receive Date: 20161122
  Receipt Date: 20161122
  Transmission Date: 20170207
  Serious: Yes (Hospitalization, Other)
  Sender: FDA-Public Use
  Company Number: PHHY2015BR113035

PATIENT
  Age: 14 Year
  Sex: Female
  Weight: 72 kg

DRUGS (6)
  1. FOLIC ACID. [Concomitant]
     Active Substance: FOLIC ACID
     Indication: BONE MARROW FAILURE
     Dosage: 1 DF, QD
     Route: 048
  2. ESTELLE [Concomitant]
     Indication: CONTRACEPTION
     Dosage: 1 DF, QD
     Route: 048
     Dates: start: 201412
  3. SULFAMETHOXAZOLE [Concomitant]
     Active Substance: SULFAMETHOXAZOLE
     Indication: CONSTIPATION
     Dosage: 2 DF (400 MG + 80 MG), QD
     Route: 048
  4. EXJADE [Suspect]
     Active Substance: DEFERASIROX
     Indication: APLASTIC ANAEMIA
     Dosage: 20 MG/KG, QD (1250 MG (2 TABLETS OF 500 MG AND 1 TABLET OF 250 MG))
     Route: 048
     Dates: start: 2013
  5. EXJADE [Suspect]
     Active Substance: DEFERASIROX
     Dosage: 1250 MG, UNK
     Route: 048
  6. OMEPRAZOLE. [Concomitant]
     Active Substance: OMEPRAZOLE
     Indication: GASTRITIS PROPHYLAXIS
     Dosage: 1 DF, QD
     Route: 048

REACTIONS (9)
  - Pyrexia [Recovered/Resolved]
  - Abdominal pain upper [Recovered/Resolved]
  - Liver disorder [Unknown]
  - Hepatitis [Unknown]
  - Constipation [Recovering/Resolving]
  - Malaise [Unknown]
  - Discomfort [Unknown]
  - Haemoglobin decreased [Recovered/Resolved]
  - Renal disorder [Unknown]

NARRATIVE: CASE EVENT DATE: 20160212
